FAERS Safety Report 7770608-4 (Version None)
Quarter: 2011Q3

REPORT INFORMATION
  Report Type: 
  Country: None (occurrence: None)
  Receive Date: 20110922
  Receipt Date: 20110907
  Transmission Date: 20111222
  Serious: Yes (Hospitalization, Other)
  Sender: FDA-Public Use
  Company Number: PHEH2011US03539

PATIENT
  Age: 65 Year
  Sex: Female

DRUGS (2)
  1. DIOVAN HCT [Suspect]
     Dosage: 1 DF, QD (320/12.5 MG)
  2. VITAMINS NOS [Concomitant]
     Dosage: UNK UKN, UNK

REACTIONS (1)
  - COLON CANCER STAGE I [None]
